FAERS Safety Report 5113394-9 (Version None)
Quarter: 2006Q3

REPORT INFORMATION
  Report Type: 
  Country: None (occurrence: None)
  Receive Date: 20060920
  Receipt Date: 20060907
  Transmission Date: 20061208
  Serious: Yes (Death, Other)
  Sender: FDA-Public Use
  Company Number: 2006JP002209

PATIENT
  Age: 54 Year
  Sex: Female
  Weight: 46.5 kg

DRUGS (27)
  1. FUNGUARD (MICAFUNGIN) INJECTION [Suspect]
     Indication: FUNGAL INFECTION
     Dosage: 150 MG, UNKNOWN/D, IV DRIP
     Route: 041
     Dates: start: 20060307, end: 20060326
  2. PROGRAF [Suspect]
     Indication: BONE MARROW TRANSPLANT
     Dosage: 1.35 MG, UNKNOWN/D, UNKNOWN
     Dates: start: 20060228, end: 20060319
  3. DIFLUCAN (FLUCONAZOLE) CAPSULE [Concomitant]
  4. LEVOFLOXACIN [Concomitant]
  5. ZOVIRAX [Concomitant]
  6. MAXIPIME [Concomitant]
  7. TOBRACIN (TOBRAMYCIN SULFATE) INJECTION [Concomitant]
  8. MEROPEN (MEROPENEM) INJECTION [Concomitant]
  9. TARGOCID [Concomitant]
  10. ACICLOVIR (ACICLOVIR) INJECTION [Concomitant]
  11. MAGNESIUM SULFATE [Concomitant]
  12. NEUPOGEN [Concomitant]
  13. OMEPRAZOLE [Concomitant]
  14. MORPHINE HYDROCHLORIDE (MORPHINE HYDROCHLORIDE) INJECTION [Concomitant]
  15. KCL (POTASSIUM CHLORIDE) INJECTION [Concomitant]
  16. HUMULIN R (INSULIN HUMAN) INJECTION [Concomitant]
  17. HACHIAZULE (SODIUM BICARBONATE, SODIUM GUALENATE) GRANULE [Concomitant]
  18. FUNGIZONE [Concomitant]
  19. XYLOCAINE LIQUID [Concomitant]
  20. MUCOSTA (REBAMIPIDE) [Concomitant]
  21. URSO 250 [Concomitant]
  22. MALFA (ALUMINIUM HYDROXIDE GEL) [Concomitant]
  23. LOPERAMIDE HCL [Concomitant]
  24. LASIX (FUROSEMIDE) INJECTION [Concomitant]
  25. SALINE (SODIUM CHLORIDE) INJECTION [Concomitant]
  26. SOLU-MEDROL [Concomitant]
  27. VENILON (IMMUNOGLOBULIN HUMAN NORMAL) INJECTION [Concomitant]

REACTIONS (7)
  - CEREBRAL HAEMORRHAGE [None]
  - GRAFT VERSUS HOST DISEASE [None]
  - OEDEMA GENITAL [None]
  - POST PROCEDURAL COMPLICATION [None]
  - STEM CELL TRANSPLANT [None]
  - TREMOR [None]
  - VULVOVAGINAL DISCOMFORT [None]
